FAERS Safety Report 26177337 (Version 1)
Quarter: 2025Q4

REPORT INFORMATION
  Report Type: Report from Study
  Country: US (occurrence: US)
  Receive Date: 20251219
  Receipt Date: 20251219
  Transmission Date: 20260118
  Serious: Yes (Hospitalization)
  Sender: ALEXION PHARMACEUTICALS
  Company Number: US-AstraZeneca-CH-01014513A

PATIENT
  Sex: Female
  Weight: 87.075 kg

DRUGS (1)
  1. OLAPARIB [Suspect]
     Active Substance: OLAPARIB
     Indication: Breast cancer female
     Dosage: 300 MILLIGRAM, BID
     Route: 061

REACTIONS (1)
  - Skin lesion [Unknown]
